FAERS Safety Report 7201933-3 (Version None)
Quarter: 2010Q4

REPORT INFORMATION
  Report Type: 
  Country: None (occurrence: None)
  Receive Date: 20101229
  Receipt Date: 20101222
  Transmission Date: 20110411
  Serious: Yes (Other)
  Sender: FDA-Public Use
  Company Number: IL-PFIZER INC-2010177911

PATIENT
  Age: 60 Year
  Sex: Female

DRUGS (1)
  1. DETRUSITOL [Suspect]

REACTIONS (1)
  - COGNITIVE DISORDER [None]
